FAERS Safety Report 5122694-8 (Version None)
Quarter: 2006Q4

REPORT INFORMATION
  Report Type: 
  Country: None (occurrence: None)
  Receive Date: 20061004
  Receipt Date: 20060919
  Transmission Date: 20070319
  Serious: Yes (Hospitalization)
  Sender: FDA-Public Use
  Company Number: 2006RR-03830

PATIENT
  Age: 9 Year
  Sex: Female

DRUGS (3)
  1. AMOXICILLIN + CLAVULANATE POTASSIUM [Suspect]
     Indication: PHARYNGITIS
     Dosage: 1500 MG, ORAL
     Route: 048
     Dates: start: 20030101, end: 20030101
  2. IBUPROFEN [Concomitant]
  3. ACETAMINOPHEN [Concomitant]

REACTIONS (2)
  - DRUG HYPERSENSITIVITY [None]
  - PURPURA [None]
